FAERS Safety Report 9782345 (Version 2)
Quarter: 2013Q4

REPORT INFORMATION
  Report Type: Report from Study
  Country: FR (occurrence: FR)
  Receive Date: 20131226
  Receipt Date: 20131226
  Transmission Date: 20140711
  Serious: Yes (Hospitalization)
  Sender: FDA-Public Use
  Company Number: PHHO2011FR05757

PATIENT
  Sex: 0

DRUGS (18)
  1. BLINDED ALISKIREN [Suspect]
     Indication: CARDIAC FAILURE
     Dosage: CODE NOT BROKEN
     Route: 048
     Dates: start: 20110419, end: 20120208
  2. BLINDED ENALAPRIL [Suspect]
     Indication: CARDIAC FAILURE
     Dosage: CODE NOT BROKEN
     Route: 048
     Dates: start: 20110419, end: 20120208
  3. BLINDED NO TREATMENT RECEIVED [Suspect]
     Indication: CARDIAC FAILURE
     Dosage: CODE NOT BROKEN
     Route: 048
     Dates: start: 20110419, end: 20120208
  4. FUROSEMIDE [Concomitant]
     Indication: CARDIAC FAILURE
     Dosage: 40 MG, BID
     Route: 048
  5. FUROSEMIDE [Concomitant]
     Dosage: 500 MG, QD
     Route: 048
     Dates: start: 20100204
  6. FUROSEMIDE [Concomitant]
     Dosage: 375 MG, BID
     Route: 048
     Dates: start: 20130510
  7. PREVISCAN [Concomitant]
     Indication: CARDIAC FAILURE
     Dosage: 30 MG, UNK
  8. PERINDOPRIL [Concomitant]
     Indication: CARDIAC FAILURE
     Dosage: 8 MG, QD
     Route: 048
     Dates: start: 20100204
  9. PERINDOPRIL [Concomitant]
     Dosage: 8 MG, BID
     Route: 048
     Dates: start: 20120209
  10. ALDACTONE [Concomitant]
     Indication: CARDIAC FAILURE
     Dosage: 50 MG, QD
     Route: 048
     Dates: start: 20100204, end: 20130729
  11. ALDACTONE [Concomitant]
     Indication: ATRIAL FIBRILLATION
  12. BISOPROLOL [Concomitant]
     Indication: CARDIAC FAILURE
     Dosage: 10 MG, QD
     Route: 048
     Dates: start: 200512
  13. AMIODARONE [Concomitant]
     Indication: ATRIAL FIBRILLATION
     Dosage: 200 MG, QD
     Route: 048
     Dates: start: 20100204
  14. AMIODARONE [Concomitant]
     Indication: VENTRICULAR TACHYCARDIA
  15. CRESTOR [Concomitant]
     Indication: DYSLIPIDAEMIA
     Dosage: 5 MG, UNK
  16. OMACOR [Concomitant]
     Indication: DYSLIPIDAEMIA
     Dosage: 1000 MG, UNK
  17. FLUINDIONE [Concomitant]
     Indication: ATRIAL FIBRILLATION
     Dosage: 15 MG, QD
     Route: 048
  18. EPLERENONE [Concomitant]
     Indication: CARDIAC FAILURE
     Dosage: 50 MG, QD
     Route: 048
     Dates: start: 20130730

REACTIONS (3)
  - Cardiac failure [Unknown]
  - Ventricular tachycardia [Recovered/Resolved]
  - Ventricular fibrillation [Recovered/Resolved]
